FAERS Safety Report 17679858 (Version 3)
Quarter: 2020Q2

REPORT INFORMATION
  Report Type: Spontaneous
  Country: US (occurrence: US)
  Receive Date: 20200417
  Receipt Date: 20200518
  Transmission Date: 20200714
  Serious: No
  Sender: FDA-Public Use
  Company Number: US-VERTEX PHARMACEUTICALS-2020-008738

PATIENT
  Age: 29 Year
  Sex: Female
  Weight: 55 kg

DRUGS (1)
  1. TRIKAFTA [Suspect]
     Active Substance: ELEXACAFTOR\IVACAFTOR\TEZACAFTOR
     Indication: CYSTIC FIBROSIS
     Dosage: 100 MG ELEXACAFTOR/50 MG TEZACAFTOR/75 MG IVACAFTOR; 150 MG IVACAFTOR, TRADITIONAL DOSING
     Route: 048
     Dates: start: 20200324

REACTIONS (12)
  - Abdominal distension [Recovered/Resolved]
  - Paranasal sinus discomfort [Recovered/Resolved]
  - Pain [Unknown]
  - Upper-airway cough syndrome [Recovered/Resolved]
  - Productive cough [Recovered/Resolved]
  - Abdominal pain upper [Recovered/Resolved]
  - Abdominal pain [Recovered/Resolved]
  - Tenderness [Recovered/Resolved]
  - Headache [Recovered/Resolved]
  - Pulmonary pain [Recovered/Resolved]
  - Chills [Unknown]
  - Constipation [Recovered/Resolved]

NARRATIVE: CASE EVENT DATE: 2020
